FAERS Safety Report 4695490-3 (Version None)
Quarter: 2005Q2

REPORT INFORMATION
  Report Type: 
  Country: None (occurrence: None)
  Receive Date: 20050620
  Receipt Date: 20050620
  Transmission Date: 20051028
  Serious: No
  Sender: FDA-Public Use
  Company Number: None

PATIENT
  Age: 83 Year
  Sex: Male
  Weight: 80.7403 kg

DRUGS (6)
  1. GATIFLOXACIN [Suspect]
     Indication: OSTEOMYELITIS
     Dosage: 400MG   DAILY   ORAL
     Route: 048
     Dates: start: 20040909, end: 20040923
  2. GATIFLOXACIN [Suspect]
     Indication: SKIN ULCER
     Dosage: 400MG   DAILY   ORAL
     Route: 048
     Dates: start: 20040909, end: 20040923
  3. DILTIAZEM [Concomitant]
  4. GLYBURIDE [Concomitant]
  5. HYDROCHLOROTHIAZIDE [Concomitant]
  6. WARFARIN SODIUM [Concomitant]

REACTIONS (1)
  - HYPERGLYCAEMIA [None]
